FAERS Safety Report 19674254 (Version 1)
Quarter: 2021Q3

REPORT INFORMATION
  Report Type: Spontaneous
  Country: US (occurrence: US)
  Receive Date: 20210809
  Receipt Date: 20210809
  Transmission Date: 20211014
  Serious: No
  Sender: FDA-Public Use
  Company Number: US-BLUEPRINT MEDICINES CORPORATION-SP-US-2021-001143

PATIENT
  Sex: Male

DRUGS (4)
  1. AYVAKIT [Suspect]
     Active Substance: AVAPRITINIB
     Dosage: 100MG ONCE DAILY FOR WEEK ONE, 200MG ONCE DAILY FOR WEEK 2, 300MG ONCE DAILY FOR WEEK 3
     Route: 048
  2. IRON [Concomitant]
     Active Substance: IRON
     Indication: PRODUCT USED FOR UNKNOWN INDICATION
     Route: 042
  3. AYVAKIT [Suspect]
     Active Substance: AVAPRITINIB
     Dosage: 100MG ONCE DAILY FOR WEEK ONE, 200MG ONCE DAILY FOR WEEK 2, 300MG ONCE DAILY FOR WEEK 3
     Route: 048
  4. AYVAKIT [Suspect]
     Active Substance: AVAPRITINIB
     Indication: GASTROINTESTINAL STROMAL TUMOUR
     Dosage: 100MG ONCE DAILY FOR WEEK ONE, 200MG ONCE DAILY FOR WEEK 2, 300MG ONCE DAILY FOR WEEK 3
     Route: 048
     Dates: start: 20210701

REACTIONS (2)
  - Fluid retention [Unknown]
  - Joint swelling [Unknown]
